FAERS Safety Report 10015586 (Version 4)
Quarter: 2014Q2

REPORT INFORMATION
  Report Type: Spontaneous
  Country: US (occurrence: US)
  Receive Date: 20140317
  Receipt Date: 20140616
  Transmission Date: 20141212
  Serious: Yes (Other)
  Sender: FDA-Public Use
  Company Number: US-BAYER-2014-036494

PATIENT
  Age: 32 Year
  Sex: Female
  Weight: 68.03 kg

DRUGS (8)
  1. MIRENA [Suspect]
     Indication: CONTRACEPTION
     Dosage: 20 MCG/24HR, CONT
     Route: 015
     Dates: start: 20080227
  2. IBUPROFEN [Concomitant]
     Indication: DYSMENORRHOEA
     Dosage: UNK
     Dates: start: 1997
  3. PRENATAL VITAMINS [Concomitant]
     Indication: PRENATAL CARE
     Dosage: UNK
     Dates: start: 2007, end: 2008
  4. PRENATAL VITAMINS [Concomitant]
     Indication: PRENATAL CARE
     Dosage: UNK
     Dates: start: 200401
  5. FOLIC ACID [Concomitant]
     Indication: PRENATAL CARE
     Dosage: UNK
     Dates: start: 2004
  6. SYNTHROID [Concomitant]
     Indication: BLOOD INSULIN DECREASED
     Dosage: UNK
     Dates: start: 201312
  7. GLUCOPHAGE [Concomitant]
  8. Z-PAK [Concomitant]

REACTIONS (10)
  - Embedded device [Not Recovered/Not Resolved]
  - Post procedural discomfort [None]
  - Device difficult to use [None]
  - Pain [Not Recovered/Not Resolved]
  - Device misuse [None]
  - Pregnancy with contraceptive device [Not Recovered/Not Resolved]
  - Drug ineffective [None]
  - Menorrhagia [None]
  - Depression [None]
  - Anxiety [None]
